FAERS Safety Report 25421451 (Version 5)
Quarter: 2025Q3

REPORT INFORMATION
  Report Type: Spontaneous
  Country: EU (occurrence: EU)
  Receive Date: 20250611
  Receipt Date: 20250813
  Transmission Date: 20251021
  Serious: Yes (Other)
  Sender: SANDOZ
  Company Number: EU-BRISTOL-MYERS SQUIBB COMPANY-2025-048589

PATIENT
  Age: 72 Year
  Sex: Male

DRUGS (27)
  1. CARBOPLATIN [Suspect]
     Active Substance: CARBOPLATIN
     Indication: Non-small cell lung cancer
     Dosage: 293 MG, QW
     Route: 042
     Dates: start: 20230621, end: 20230719
  2. CISPLATIN [Suspect]
     Active Substance: CISPLATIN
     Indication: Non-small cell lung cancer
     Dosage: 69 MG, QW
     Route: 042
     Dates: start: 20250115, end: 20250319
  3. OPDIVO [Suspect]
     Active Substance: NIVOLUMAB
     Indication: Non-small cell lung cancer
     Dosage: 360 MG, Q3W
     Route: 042
     Dates: start: 20230621, end: 20231004
  4. OPDIVO [Suspect]
     Active Substance: NIVOLUMAB
     Dosage: 360 MG, Q3W
     Route: 042
     Dates: start: 20250116, end: 20250320
  5. OPDIVO [Suspect]
     Active Substance: NIVOLUMAB
     Route: 042
     Dates: start: 20250410
  6. PEMETREXED [Suspect]
     Active Substance: PEMETREXED
     Indication: Product used for unknown indication
     Dosage: 490 MG, QW
     Route: 065
     Dates: start: 20230621, end: 20250319
  7. PEMETREXED [Suspect]
     Active Substance: PEMETREXED
     Dosage: 980 MG, QW
     Route: 065
     Dates: start: 20250115, end: 20250319
  8. PEMETREXED [Suspect]
     Active Substance: PEMETREXED
     Dosage: 980 MG, QW
     Route: 065
     Dates: start: 20250119, end: 20250319
  9. PEMETREXED [Suspect]
     Active Substance: PEMETREXED
     Dosage: 980 MG, QW
     Route: 065
     Dates: start: 20250621, end: 20250719
  10. YERVOY [Suspect]
     Active Substance: IPILIMUMAB
     Indication: Non-small cell lung cancer
     Route: 042
     Dates: start: 20230621, end: 20230913
  11. YERVOY [Suspect]
     Active Substance: IPILIMUMAB
     Route: 042
     Dates: start: 20250116, end: 20250320
  12. YERVOY [Suspect]
     Active Substance: IPILIMUMAB
     Route: 042
     Dates: start: 20250410
  13. FILGRASTIM [Concomitant]
     Active Substance: FILGRASTIM
     Indication: Product used for unknown indication
     Route: 065
     Dates: start: 20230724, end: 20230725
  14. ASPIRIN [Concomitant]
     Active Substance: ASPIRIN
     Indication: Product used for unknown indication
     Route: 065
  15. ATARAX [Concomitant]
     Active Substance: HYDROXYZINE HYDROCHLORIDE
     Indication: Product used for unknown indication
     Route: 065
     Dates: start: 20250512, end: 20250512
  16. ATORVASTATIN [Concomitant]
     Active Substance: ATORVASTATIN
     Indication: Product used for unknown indication
     Route: 065
  17. CIPRO [Concomitant]
     Active Substance: CIPROFLOXACIN HYDROCHLORIDE
     Indication: Product used for unknown indication
     Route: 065
     Dates: start: 20230724, end: 20230802
  18. Kalinor-retard [Concomitant]
     Indication: Product used for unknown indication
     Route: 065
     Dates: start: 20230916, end: 20231011
  19. Kalinor-retard [Concomitant]
     Route: 065
     Dates: start: 20250402
  20. POLYETHYLENE GLYCOLS [Concomitant]
     Active Substance: POLYETHYLENE GLYCOLS
     Indication: Product used for unknown indication
     Route: 065
     Dates: start: 20230802, end: 20230809
  21. METOPROLOL SUCCINATE [Concomitant]
     Active Substance: METOPROLOL SUCCINATE
     Indication: Product used for unknown indication
     Route: 065
  22. NAPROXEN [Concomitant]
     Active Substance: NAPROXEN
     Indication: Product used for unknown indication
     Route: 065
  23. METAMIZOLE [Concomitant]
     Active Substance: METAMIZOLE
     Indication: Prophylaxis
     Route: 065
  24. PANTOPRAZOLE SODIUM [Concomitant]
     Active Substance: PANTOPRAZOLE SODIUM
     Indication: Prophylaxis
     Route: 065
  25. RAMIPRIL [Concomitant]
     Active Substance: RAMIPRIL
     Indication: Product used for unknown indication
     Route: 065
  26. NALOXONE HYDROCHLORIDE\TILIDINE HYDROCHLORIDE [Concomitant]
     Active Substance: NALOXONE HYDROCHLORIDE\TILIDINE HYDROCHLORIDE
     Indication: Cervicobrachial syndrome
     Route: 065
  27. TORSEMIDE [Concomitant]
     Active Substance: TORSEMIDE
     Indication: Prophylaxis
     Route: 065

REACTIONS (8)
  - Autoimmune hepatitis [Recovered/Resolved]
  - Pancytopenia [Recovered/Resolved]
  - Fatigue [Unknown]
  - Pruritus [Recovered/Resolved]
  - Dyspnoea [Unknown]
  - Ageusia [Recovered/Resolved]
  - Asthenia [Recovered/Resolved]
  - Rash pruritic [Recovered/Resolved]

NARRATIVE: CASE EVENT DATE: 20250127
